FAERS Safety Report 5238653-0 (Version None)
Quarter: 2007Q1

REPORT INFORMATION
  Report Type: 
  Country: None (occurrence: None)
  Receive Date: 20070214
  Receipt Date: 20070214
  Transmission Date: 20070707
  Serious: Yes (Hospitalization)
  Sender: FDA-Public Use
  Company Number: None

PATIENT
  Age: 67 Year
  Sex: Male
  Weight: 107.0489 kg

DRUGS (22)
  1. DILTIAZEM [Suspect]
     Indication: CARDIAC FAILURE CONGESTIVE
     Dosage: 180 MG DAILY
  2. DILTIAZEM [Suspect]
     Indication: CORONARY ARTERY DISEASE
     Dosage: 180 MG DAILY
  3. FUROSEMIDE [Suspect]
     Dosage: 40 MG AM, 20 MG @ NOON
  4. ISOSORBIDE DINITRATE EXTENDED-RELEASE [Suspect]
     Dosage: 90 MG DAILY
  5. LISINOPRIL [Suspect]
     Dosage: 20 MG DAILY LOWER DOSE DC
  6. ALBUTEROL/IPRATROP [Concomitant]
  7. BACITRACIN [Concomitant]
  8. DILTIAZEM [Concomitant]
  9. DIPHENHYDRAMINE HCL [Concomitant]
  10. DOCUSATE CA [Concomitant]
  11. FLUOXETINE HCL [Concomitant]
  12. FUROSEMIDE [Concomitant]
  13. GUAIFENESIN SA [Concomitant]
  14. LEVALBUTEROL TART [Concomitant]
  15. LORAZEPAM [Concomitant]
  16. MOMETASONE FUROATE [Concomitant]
  17. NAPROXEN [Concomitant]
  18. NITROGLYCERIN SL [Concomitant]
  19. PREDNISONE TAB [Concomitant]
  20. RANITIDINE HCL [Concomitant]
  21. SELENIUM SULFIDE [Concomitant]
  22. SIMVASTATIN [Concomitant]

REACTIONS (2)
  - BLOOD POTASSIUM INCREASED [None]
  - PRESYNCOPE [None]
